FAERS Safety Report 4995196-7 (Version None)
Quarter: 2006Q2

REPORT INFORMATION
  Report Type: 
  Country: None (occurrence: None)
  Receive Date: 20060508
  Receipt Date: 20060103
  Transmission Date: 20061013
  Serious: Yes (Other)
  Sender: FDA-Public Use
  Company Number: US-MERCK-0601USA00262

PATIENT
  Age: 58 Year
  Sex: Male
  Weight: 82 kg

DRUGS (2)
  1. VIOXX [Suspect]
     Indication: ARTHRITIS
     Route: 048
     Dates: start: 20000222, end: 20040601
  2. VIOXX [Suspect]
     Indication: BACK PAIN
     Route: 048
     Dates: start: 20000222, end: 20040601

REACTIONS (10)
  - ABDOMINAL PAIN [None]
  - BLINDNESS [None]
  - BONE DEVELOPMENT ABNORMAL [None]
  - CHEST PAIN [None]
  - FATIGUE [None]
  - GALLBLADDER DISORDER [None]
  - HEPATITIS A [None]
  - HEPATOCELLULAR DAMAGE [None]
  - OCULAR VASCULAR DISORDER [None]
  - VASCULAR OCCLUSION [None]
